FAERS Safety Report 11740604 (Version 2)
Quarter: 2015Q4

REPORT INFORMATION
  Report Type: Spontaneous
  Country: US (occurrence: US)
  Receive Date: 20151110
  Receipt Date: 20151120
  Transmission Date: 20160304
  Serious: No
  Sender: FDA-Public Use
  Company Number: US-ELI_LILLY_AND_COMPANY-US201208002435

PATIENT
  Age: 61 Year
  Sex: Female

DRUGS (1)
  1. FORTEO [Suspect]
     Active Substance: TERIPARATIDE
     Indication: OSTEOPOROSIS
     Dosage: UNK, QD
     Dates: start: 20120626

REACTIONS (9)
  - Palpitations [Recovered/Resolved]
  - Nasal congestion [Unknown]
  - Oropharyngeal pain [Unknown]
  - Oral discomfort [Recovered/Resolved]
  - Lacrimation increased [Recovered/Resolved]
  - Sinusitis [Recovered/Resolved]
  - Headache [Recovered/Resolved]
  - Vision blurred [Unknown]
  - Tinnitus [Unknown]
